FAERS Safety Report 5498044-4 (Version None)
Quarter: 2007Q4

REPORT INFORMATION
  Report Type: 
  Country: None (occurrence: None)
  Receive Date: 20071025
  Receipt Date: 20071013
  Transmission Date: 20080405
  Serious: Yes (Other)
  Sender: FDA-Public Use
  Company Number: US-PFIZER INC-2007086585

PATIENT
  Sex: Female

DRUGS (5)
  1. LYRICA [Suspect]
     Indication: FIBROMYALGIA
  2. ROXICET [Concomitant]
  3. FIORICET [Concomitant]
  4. SOMA [Concomitant]
  5. METHADONE HCL [Concomitant]

REACTIONS (5)
  - ABASIA [None]
  - BEDRIDDEN [None]
  - DIZZINESS [None]
  - FATIGUE [None]
  - PAIN [None]
